FAERS Safety Report 4285071-8 (Version None)
Quarter: 2004Q1

REPORT INFORMATION
  Report Type: 
  Country: None (occurrence: None)
  Receive Date: 20040202
  Receipt Date: 20040122
  Transmission Date: 20041129
  Serious: Yes (Hospitalization)
  Sender: FDA-Public Use
  Company Number: 04P-163-0248089-00

PATIENT
  Age: 41 Year
  Sex: Female

DRUGS (4)
  1. NORVIR [Suspect]
     Indication: HIV INFECTION
     Dosage: 400 MG, 1 IN 1 D, PER ORAL
     Route: 048
     Dates: start: 20030501
  2. TIPRANAVIR [Concomitant]
  3. EFAVIRENZ [Concomitant]
  4. VIREAD [Concomitant]

REACTIONS (1)
  - HOSPITALISATION [None]
